FAERS Safety Report 6457759-1 (Version None)
Quarter: 2009Q4

REPORT INFORMATION
  Report Type: 
  Country: None (occurrence: None)
  Receive Date: 20091125
  Receipt Date: 20091116
  Transmission Date: 20100525
  Serious: Yes (Other)
  Sender: FDA-Public Use
  Company Number: GB-ASTRAZENECA-2009SE26671

PATIENT
  Age: 19 Year
  Sex: Male

DRUGS (4)
  1. SEROQUEL XR [Suspect]
     Indication: PSYCHOTIC DISORDER
     Route: 048
     Dates: start: 20090901
  2. LORAZEPAM [Concomitant]
     Indication: AGITATION
     Dates: start: 20090801, end: 20090901
  3. LORAZEPAM [Concomitant]
     Indication: SOCIAL PHOBIA
     Dates: start: 20090801, end: 20090901
  4. PROCYCLIDINE HYDROCHLORIDE 2MG TAB [Concomitant]
     Indication: EXTRAPYRAMIDAL DISORDER
     Route: 048
     Dates: start: 20091001

REACTIONS (1)
  - PAIN IN EXTREMITY [None]
